FAERS Safety Report 19211455 (Version 1)
Quarter: 2021Q2

REPORT INFORMATION
  Report Type: Spontaneous
  Country: US (occurrence: US)
  Receive Date: 20210503
  Receipt Date: 20210503
  Transmission Date: 20210717
  Serious: Yes (Hospitalization)
  Sender: FDA-Public Use
  Company Number: None

PATIENT
  Age: 60 Year
  Sex: Male
  Weight: 111.5 kg

DRUGS (8)
  1. AMLODIPINE [Concomitant]
     Active Substance: AMLODIPINE BESYLATE
  2. FLUOROURACIL. [Concomitant]
     Active Substance: FLUOROURACIL
  3. HYDROCHLOROTHIAZIDE. [Concomitant]
     Active Substance: HYDROCHLOROTHIAZIDE
  4. POTASSIUM [Concomitant]
     Active Substance: POTASSIUM
  5. AVASTIN [Concomitant]
     Active Substance: BEVACIZUMAB
  6. TRAMADOL. [Concomitant]
     Active Substance: TRAMADOL
  7. LEUCOVORIN. [Concomitant]
     Active Substance: LEUCOVORIN
  8. OXALIPLATIN 100 MG/20M ML VIAL [Suspect]
     Active Substance: OXALIPLATIN
     Indication: COLON CANCER
     Route: 042
     Dates: start: 20210107

REACTIONS (1)
  - Hospitalisation [None]
